FAERS Safety Report 14958213 (Version 2)
Quarter: 2018Q2

REPORT INFORMATION
  Report Type: Spontaneous
  Country: FR (occurrence: FR)
  Receive Date: 20180531
  Receipt Date: 20180622
  Transmission Date: 20180711
  Serious: Yes (Other)
  Sender: FDA-Public Use
  Company Number: FR-009507513-1805FRA014587

PATIENT
  Age: 16 Year
  Sex: Female
  Weight: 50 kg

DRUGS (1)
  1. NEXPLANON [Suspect]
     Active Substance: ETONOGESTREL
     Dosage: 1 IMPLANT, UNK; IN THE LEFT ARM (RIGHT-HANDED PATIENT)
     Route: 065
     Dates: start: 20180518, end: 20180528

REACTIONS (5)
  - Phlebitis superficial [Unknown]
  - Implant site erythema [Not Recovered/Not Resolved]
  - Complication associated with device [Recovered/Resolved]
  - Device embolisation [Recovered/Resolved]
  - Complication associated with device [Recovered/Resolved]

NARRATIVE: CASE EVENT DATE: 201805
